FAERS Safety Report 5402321-2 (Version None)
Quarter: 2007Q3

REPORT INFORMATION
  Report Type: 
  Country: None (occurrence: None)
  Receive Date: 20070730
  Receipt Date: 20070719
  Transmission Date: 20080115
  Serious: No
  Sender: FDA-Public Use
  Company Number: 2005BI003990

PATIENT
  Age: 35 Year
  Sex: Female
  Weight: 68.0396 kg

DRUGS (4)
  1. NATALIZUMAB [Suspect]
     Indication: MULTIPLE SCLEROSIS
     Dosage: 300 MG;QM;IV
     Route: 042
     Dates: start: 20050214, end: 20050201
  2. AVONEX [Concomitant]
  3. MOTRIN [Concomitant]
  4. ANAPROX [Concomitant]

REACTIONS (1)
  - CELLULITIS STAPHYLOCOCCAL [None]
